FAERS Safety Report 6085215-1 (Version None)
Quarter: 2009Q1

REPORT INFORMATION
  Report Type: 
  Country: None (occurrence: None)
  Receive Date: 20090220
  Receipt Date: 20090211
  Transmission Date: 20090719
  Serious: Yes (Other)
  Sender: FDA-Public Use
  Company Number: US-BIOGENIDEC-2009BI004616

PATIENT
  Age: 54 Year
  Sex: Female

DRUGS (2)
  1. AVONEX [Suspect]
     Indication: MULTIPLE SCLEROSIS
     Route: 030
     Dates: start: 20030101, end: 20050101
  2. AVONEX [Suspect]
     Route: 030
     Dates: start: 20050101, end: 20090104

REACTIONS (4)
  - ASTHENIA [None]
  - CARDIAC VALVE DISEASE [None]
  - FATIGUE [None]
  - HYPERTENSION [None]
